FAERS Safety Report 8960389 (Version 1)
Quarter: 2012Q4

REPORT INFORMATION
  Report Type: 
  Country: US (occurrence: US)
  Receive Date: 20121212
  Receipt Date: 20121212
  Transmission Date: 20130627
  Serious: Yes (Other)
  Sender: FDA-Public Use
  Company Number: US-BAYER-2012-128825

PATIENT
  Age: 44 Year
  Sex: Female
  Weight: 82.09 kg

DRUGS (13)
  1. YASMIN [Suspect]
  2. OCELLA [Suspect]
  3. KENALOG [Concomitant]
     Dosage: 0.1 %,BID
     Route: 061
     Dates: start: 20110707
  4. DEPO MEDROL [Concomitant]
     Dosage: 40 mg, UNK
     Route: 030
     Dates: start: 20110712
  5. CELEXA [Concomitant]
     Dosage: 40 mg, q day
     Route: 048
     Dates: start: 20111024
  6. LORTAB [Concomitant]
     Indication: PAIN
     Dosage: 7.5 mg, q 6 hours PRN
     Route: 048
     Dates: start: 20110707, end: 20111024
  7. MEDROL [Concomitant]
     Dosage: UNK
     Route: 048
     Dates: start: 20110707, end: 20111024
  8. NAPROSYN [Concomitant]
     Dosage: 500 mg, po bid
     Route: 048
     Dates: start: 20110707, end: 20111024
  9. NEXIUM [Concomitant]
     Dosage: 40 mg, QD
     Route: 048
     Dates: start: 20111024
  10. PROVIGIL [Concomitant]
     Dosage: 100 mg, q am
     Route: 048
     Dates: start: 20111024
  11. TRIAMCINOLONE [Concomitant]
     Dosage: 0.1 %, UNK
     Route: 061
     Dates: start: 20110712, end: 20111024
  12. VOLTAREN [Concomitant]
     Dosage: 50 mg, BID
     Route: 048
     Dates: start: 20111024
  13. ASPIRIN [Concomitant]
     Dosage: UNK, daily
     Route: 048
     Dates: start: 20111115

REACTIONS (1)
  - Deep vein thrombosis [None]
